FAERS Safety Report 18982854 (Version 1)
Quarter: 2021Q1

REPORT INFORMATION
  Report Type: Spontaneous
  Country: US (occurrence: US)
  Receive Date: 20210225
  Receipt Date: 20210225
  Transmission Date: 20210420
  Serious: Yes (Other)
  Sender: FDA-Public Use
  Company Number: None

PATIENT
  Age: 44 Year
  Sex: Female
  Weight: 83.91 kg

DRUGS (2)
  1. ATENOLOL. [Concomitant]
     Active Substance: ATENOLOL
     Dates: start: 20210101
  2. ATENOLOL. [Suspect]
     Active Substance: ATENOLOL

REACTIONS (6)
  - Expired product administered [None]
  - Tachycardia [None]
  - Product dispensing error [None]
  - Blood pressure measurement [None]
  - Product substitution issue [None]
  - Paraesthesia [None]

NARRATIVE: CASE EVENT DATE: 20210101
